FAERS Safety Report 20976506 (Version 1)
Quarter: 2022Q2

REPORT INFORMATION
  Report Type: Spontaneous
  Country: US (occurrence: US)
  Receive Date: 20220617
  Receipt Date: 20220617
  Transmission Date: 20220721
  Serious: No
  Sender: FDA-Public Use
  Company Number: US-MYLANLABS-2022M1044663

PATIENT
  Sex: Female
  Weight: 77.11 kg

DRUGS (1)
  1. WIXELA INHUB [Suspect]
     Active Substance: FLUTICASONE PROPIONATE\SALMETEROL XINAFOATE
     Indication: Chronic obstructive pulmonary disease
     Dosage: 500/50 MICROGRAM, BID
     Route: 055

REACTIONS (3)
  - Dyspnoea [Unknown]
  - Quality of life decreased [Unknown]
  - Device issue [Unknown]
